FAERS Safety Report 4832075-X (Version None)
Quarter: 2005Q4

REPORT INFORMATION
  Report Type: 
  Country: None (occurrence: None)
  Receive Date: 20051116
  Receipt Date: 20051102
  Transmission Date: 20060501
  Serious: Yes (Death)
  Sender: FDA-Public Use
  Company Number: 2005-DE-02338GD

PATIENT

DRUGS (8)
  1. PARACETAMOL (PARACETAMOL) [Suspect]
  2. MIRTAZAPINE [Suspect]
  3. COCAINE (COCAINE) [Suspect]
  4. OXYCODONE HCL [Suspect]
  5. PROPOXYPHENE HCL [Suspect]
  6. SALICYLATES (SALICYLATES) [Suspect]
  7. HYDROCODONE BITARTRATE [Suspect]
  8. MARIJUANA (CANNABIS SATIVA) [Suspect]

REACTIONS (2)
  - DRUG TOXICITY [None]
  - POLYSUBSTANCE ABUSE [None]
